FAERS Safety Report 15749737 (Version 20)
Quarter: 2022Q3

REPORT INFORMATION
  Report Type: Other
  Country: DE (occurrence: None)
  Receive Date: 20181221
  Receipt Date: 20220706
  Transmission Date: 20221027
  Serious: Yes (Other)
  Sender: FDA-Public Use
  Company Number: DE-ROCHE-2234716

PATIENT
  Age: 48 Year
  Sex: Female

DRUGS (11)
  1. OCREVUS [Suspect]
     Active Substance: OCRELIZUMAB
     Indication: Secondary progressive multiple sclerosis
     Route: 042
     Dates: start: 20181121
  2. OCREVUS [Suspect]
     Active Substance: OCRELIZUMAB
     Route: 042
     Dates: start: 20190704
  3. OCREVUS [Suspect]
     Active Substance: OCRELIZUMAB
     Dosage: 3RD MAINTENANCE DOSE
     Route: 042
     Dates: start: 20200701
  4. OCREVUS [Suspect]
     Active Substance: OCRELIZUMAB
     Dosage: ADDITIONAL TREATMENT DATE: 05/JAN/2022
     Route: 042
     Dates: start: 20210630
  5. CORTISONE [Suspect]
     Active Substance: CORTISONE
     Indication: Product used for unknown indication
     Route: 065
     Dates: start: 20190704
  6. CORTISONE [Suspect]
     Active Substance: CORTISONE
     Route: 065
     Dates: start: 20200701
  7. COMIRNATY [Suspect]
     Active Substance: TOZINAMERAN
     Indication: COVID-19 immunisation
     Route: 065
     Dates: start: 20210429, end: 20210429
  8. COMIRNATY [Suspect]
     Active Substance: TOZINAMERAN
     Route: 065
     Dates: start: 20210527, end: 20210527
  9. LEVOTHYROXINE SODIUM [Concomitant]
     Active Substance: LEVOTHYROXINE SODIUM
  10. DYDROGESTERONE\ESTRADIOL [Concomitant]
     Active Substance: DYDROGESTERONE\ESTRADIOL
  11. SERTRALINE HYDROCHLORIDE [Concomitant]
     Active Substance: SERTRALINE HYDROCHLORIDE

REACTIONS (32)
  - Haematoma [Recovered/Resolved]
  - Off label use [Unknown]
  - Gastric ulcer [Recovered/Resolved]
  - Overdose [Unknown]
  - Influenza [Recovered/Resolved]
  - Chills [Recovered/Resolved]
  - Rash [Recovered/Resolved]
  - Nausea [Recovered/Resolved]
  - Pyrexia [Recovered/Resolved]
  - Oral herpes [Recovered/Resolved]
  - Eye irritation [Recovered/Resolved]
  - C-reactive protein increased [Not Recovered/Not Resolved]
  - Headache [Recovered/Resolved]
  - Cough [Recovered/Resolved]
  - Nasopharyngitis [Recovered/Resolved]
  - Vertigo positional [Recovered/Resolved]
  - Nausea [Recovered/Resolved]
  - Cystitis noninfective [Recovered/Resolved]
  - Cardiac disorder [Recovered/Resolved]
  - Sleep disorder [Recovered/Resolved]
  - Arthralgia [Not Recovered/Not Resolved]
  - Fatigue [Recovered/Resolved]
  - Fatigue [Recovered/Resolved]
  - Oropharyngeal pain [Recovered/Resolved]
  - Pain in extremity [Recovered/Resolved]
  - White blood cell count increased [Not Recovered/Not Resolved]
  - Cystitis [Recovered/Resolved]
  - Vaccination failure [Not Recovered/Not Resolved]
  - Hallucinations, mixed [Recovered/Resolved]
  - Anxiety [Recovering/Resolving]
  - COVID-19 [Recovered/Resolved]
  - Pharyngeal inflammation [Recovered/Resolved]

NARRATIVE: CASE EVENT DATE: 20181121
